FAERS Safety Report 7632836-8 (Version None)
Quarter: 2011Q3

REPORT INFORMATION
  Report Type: 
  Country: None (occurrence: None)
  Receive Date: 20110715
  Receipt Date: 20110705
  Transmission Date: 20111222
  Serious: No
  Sender: FDA-Public Use
  Company Number: 2011-00921

PATIENT
  Age: 53 Year
  Sex: Female
  Weight: 58.9676 kg

DRUGS (3)
  1. OXYMETAZOLINE HCL [Suspect]
     Dosage: BID, 4 DAYS
     Dates: start: 20110701, end: 20110704
  2. LOVASTATIN [Concomitant]
  3. ZYRTEC [Concomitant]

REACTIONS (2)
  - ANOSMIA [None]
  - AGEUSIA [None]
